FAERS Safety Report 4510381-6 (Version None)
Quarter: 2004Q4

REPORT INFORMATION
  Report Type: 
  Country: None (occurrence: None)
  Receive Date: 20041124
  Receipt Date: 20041117
  Transmission Date: 20050328
  Serious: Yes (Death, Life-Threatening, Hospitalization)
  Sender: FDA-Public Use
  Company Number: FR-BRISTOL-MYERS SQUIBB COMPANY-12769576

PATIENT
  Age: 78 Year
  Sex: Male

DRUGS (4)
  1. VASTEN [Suspect]
     Indication: HYPERCHOLESTEROLAEMIA
     Route: 048
  2. ATENOLOL [Suspect]
     Indication: ESSENTIAL HYPERTENSION
     Route: 048
  3. TRINIPATCH [Suspect]
     Indication: ANGINA PECTORIS
     Route: 061
  4. PRITOR [Suspect]
     Indication: ESSENTIAL HYPERTENSION
     Route: 048

REACTIONS (5)
  - CARDIO-RESPIRATORY ARREST [None]
  - DYSPNOEA [None]
  - HYPOXIA [None]
  - INTERSTITIAL LUNG DISEASE [None]
  - PULMONARY HYPERTENSION [None]
